FAERS Safety Report 19600598 (Version 1)
Quarter: 2021Q3

REPORT INFORMATION
  Report Type: Spontaneous
  Country: US (occurrence: US)
  Receive Date: 20210723
  Receipt Date: 20210723
  Transmission Date: 20211014
  Serious: No
  Sender: FDA-Public Use
  Company Number: US-TEVA-2021-US-1935401

PATIENT
  Age: 38 Year
  Sex: Female

DRUGS (1)
  1. ADIPEX [Suspect]
     Active Substance: PHENTERMINE
     Indication: WEIGHT INCREASED
     Route: 065
     Dates: start: 202105

REACTIONS (1)
  - Therapeutic response unexpected [Unknown]

NARRATIVE: CASE EVENT DATE: 202105
